FAERS Safety Report 9258079 (Version 1)
Quarter: 2013Q2

REPORT INFORMATION
  Report Type: Spontaneous
  Country: ZA (occurrence: ZA)
  Receive Date: 20130426
  Receipt Date: 20130426
  Transmission Date: 20140414
  Serious: Yes (Hospitalization, Other)
  Sender: FDA-Public Use
  Company Number: ZA-NOVOPROD-375869

PATIENT
  Sex: Female
  Weight: 1.8 kg

DRUGS (4)
  1. NOVORAPID FLEXPEN [Suspect]
     Indication: GESTATIONAL DIABETES
     Dosage: 8IU MORNING, 6IU AFTERNOON  AND 5IU NIGHT
     Route: 064
     Dates: end: 20121231
  2. NOVORAPID FLEXPEN [Suspect]
     Indication: GESTATIONAL DIABETES
     Dosage: 8IU MORNING, 6IU AFTERNOON  AND 5IU NIGHT
     Route: 064
     Dates: end: 20121231
  3. LEVEMIR FLEXPEN [Suspect]
     Indication: GESTATIONAL DIABETES
     Dosage: 20, IU, SINGLE
     Route: 064
     Dates: end: 20121231
  4. HY-PO-TONE [Concomitant]
     Indication: PRE-ECLAMPSIA
     Dosage: 1 TAB, TID

REACTIONS (3)
  - Low birth weight baby [Recovered/Resolved]
  - Premature baby [Unknown]
  - Foetal exposure during pregnancy [Unknown]
